FAERS Safety Report 8914898 (Version 2)
Quarter: 2014Q2

REPORT INFORMATION
  Report Type: Spontaneous
  Country: DE (occurrence: DE)
  Receive Date: 20121116
  Receipt Date: 20140604
  Transmission Date: 20141212
  Serious: Yes (Other)
  Sender: FDA-Public Use
  Company Number: DE-GILEAD-2012-0064671

PATIENT
  Age: 25 Year
  Sex: Male

DRUGS (1)
  1. VIREAD [Suspect]
     Indication: CHRONIC HEPATITIS B
     Dosage: UNK
     Route: 065
     Dates: start: 200904

REACTIONS (3)
  - Genotype drug resistance test positive [Unknown]
  - HIV test positive [Unknown]
  - Pathogen resistance [Unknown]
